APPROVED DRUG PRODUCT: DIPHENOXYLATE HYDROCHLORIDE AND ATROPINE SULFATE
Active Ingredient: ATROPINE SULFATE; DIPHENOXYLATE HYDROCHLORIDE
Strength: 0.025MG;2.5MG
Dosage Form/Route: TABLET;ORAL
Application: A085035 | Product #001
Applicant: R AND S PHARMA INC
Approved: Approved Prior to Jan 1, 1982 | RLD: No | RS: No | Type: DISCN